FAERS Safety Report 6645013-4 (Version None)
Quarter: 2010Q1

REPORT INFORMATION
  Report Type: 
  Country: None (occurrence: None)
  Receive Date: 20100319
  Receipt Date: 20100319
  Transmission Date: 20100710
  Serious: Yes (Death)
  Sender: FDA-Public Use
  Company Number: None

PATIENT
  Age: 86 Year
  Sex: Female
  Weight: 56.4 kg

DRUGS (4)
  1. DROPERIDOL -INAPSINE- 2.5 MG/ML AMERICAN REGENT [Suspect]
     Indication: NAUSEA
     Dosage: 1.25 MG ONCE IV; 1.25 MG ONCE IV
     Route: 042
     Dates: start: 20090823, end: 20090823
  2. DROPERIDOL -INAPSINE- 2.5 MG/ML AMERICAN REGENT [Suspect]
     Indication: VOMITING
     Dosage: 1.25 MG ONCE IV; 1.25 MG ONCE IV
     Route: 042
     Dates: start: 20090823, end: 20090823
  3. DROPERIDOL -INAPSINE- 2.5 MG/ML AMERICAN REGENT [Suspect]
     Indication: NAUSEA
     Dosage: 1.25 MG ONCE IV; 1.25 MG ONCE IV
     Route: 042
     Dates: start: 20090824, end: 20090824
  4. DROPERIDOL -INAPSINE- 2.5 MG/ML AMERICAN REGENT [Suspect]
     Indication: VOMITING
     Dosage: 1.25 MG ONCE IV; 1.25 MG ONCE IV
     Route: 042
     Dates: start: 20090824, end: 20090824

REACTIONS (4)
  - BLOOD POTASSIUM INCREASED [None]
  - BLOOD PRESSURE INADEQUATELY CONTROLLED [None]
  - CARDIO-RESPIRATORY ARREST [None]
  - VENTRICULAR TACHYCARDIA [None]
